FAERS Safety Report 16711001 (Version 1)
Quarter: 2019Q3

REPORT INFORMATION
  Report Type: Spontaneous
  Country: FR (occurrence: FR)
  Receive Date: 20190816
  Receipt Date: 20190816
  Transmission Date: 20191004
  Serious: Yes (Other)
  Sender: FDA-Public Use
  Company Number: FR-OTSUKA-2019_029285

PATIENT
  Age: 43 Year
  Sex: Male
  Weight: 106 kg

DRUGS (1)
  1. ABILIFY MAINTENA [Suspect]
     Active Substance: ARIPIPRAZOLE
     Indication: SCHIZOPHRENIFORM DISORDER
     Dosage: 400 MG, EVERY 4 WEEKS
     Route: 030
     Dates: start: 20190727

REACTIONS (5)
  - Nausea [Recovering/Resolving]
  - Tinnitus [Recovering/Resolving]
  - Product use in unapproved indication [Unknown]
  - Vertigo [Recovering/Resolving]
  - Somnolence [Recovering/Resolving]

NARRATIVE: CASE EVENT DATE: 20190727
